FAERS Safety Report 6715889-0 (Version None)
Quarter: 2010Q2

REPORT INFORMATION
  Report Type: 
  Country: None (occurrence: None)
  Receive Date: 20100506
  Receipt Date: 20100506
  Transmission Date: 20101027
  Serious: No
  Sender: FDA-Public Use
  Company Number: None

PATIENT
  Sex: Female
  Weight: 41.6 kg

DRUGS (1)
  1. ERBITUX [Suspect]
     Dosage: 540 MG

REACTIONS (3)
  - ATRIAL FIBRILLATION [None]
  - BACK PAIN [None]
  - HEADACHE [None]
